FAERS Safety Report 4852682-8 (Version None)
Quarter: 2005Q4

REPORT INFORMATION
  Report Type: 
  Country: None (occurrence: None)
  Receive Date: 20051125
  Receipt Date: 20050523
  Transmission Date: 20060501
  Serious: Yes (Other)
  Sender: FDA-Public Use
  Company Number: 2005070485

PATIENT
  Age: 68 Year
  Sex: Male
  Weight: 86.1834 kg

DRUGS (11)
  1. TIKOSYN [Suspect]
     Indication: ATRIAL FIBRILLATION
     Dosage: 1 MG (0.5 MG, BID INTERVAL:  EVERY DAY)
  2. VITAMINS [Concomitant]
  3. MAGNESIUM [Concomitant]
  4. METFORMIN [Concomitant]
  5. ATENOLOL [Concomitant]
  6. LASIX [Concomitant]
  7. COUMADIN [Concomitant]
  8. POTASSIUM [Concomitant]
  9. PRAVACHOL [Concomitant]
  10. COZAAR [Concomitant]
  11. GLIPIZIDE [Concomitant]

REACTIONS (3)
  - CHEST PAIN [None]
  - DRUG INEFFECTIVE [None]
  - ELECTROCARDIOGRAM QT PROLONGED [None]
